FAERS Safety Report 10591140 (Version 5)
Quarter: 2015Q2

REPORT INFORMATION
  Report Type: Report from Study
  Country: CN (occurrence: CN)
  Receive Date: 20141118
  Receipt Date: 20150501
  Transmission Date: 20150821
  Serious: Yes (Life-Threatening, Hospitalization, Other)
  Sender: FDA-Public Use
  Company Number: CN-TEVA-520429USA

PATIENT
  Age: 53 Year
  Sex: Male
  Weight: 61 kg

DRUGS (6)
  1. ENTECAVIR. [Concomitant]
     Active Substance: ENTECAVIR
     Indication: HEPATITIS B
     Dosage: 500 MILLIGRAM DAILY;
     Route: 048
     Dates: start: 20141027
  2. BENDAMUSTINE HCL [Suspect]
     Active Substance: BENDAMUSTINE HYDROCHLORIDE
     Dosage: 204 MILLIGRAM DAILY;
     Route: 042
     Dates: start: 20140911, end: 20140912
  3. BENDAMUSTINE HCL [Suspect]
     Active Substance: BENDAMUSTINE HYDROCHLORIDE
     Indication: NON-HODGKIN^S LYMPHOMA
     Dosage: 204 MILLIGRAM DAILY;
     Route: 042
     Dates: start: 20140722, end: 20140723
  4. BENDAMUSTINE HCL [Suspect]
     Active Substance: BENDAMUSTINE HYDROCHLORIDE
     Dosage: 204 MILLIGRAM DAILY;
     Route: 042
     Dates: start: 20140819, end: 20140820
  5. BENDAMUSTINE HCL [Suspect]
     Active Substance: BENDAMUSTINE HYDROCHLORIDE
     Dosage: 204 MILLIGRAM DAILY;
     Route: 042
     Dates: start: 20141002, end: 20141002
  6. LAMIVUDINE. [Concomitant]
     Active Substance: LAMIVUDINE
     Indication: HEPATITIS B
     Dosage: 100 MILLIGRAM DAILY;
     Route: 048
     Dates: start: 20140722, end: 20141027

REACTIONS (2)
  - Hepatic failure [Recovered/Resolved]
  - Thrombocytopenia [Recovered/Resolved]

NARRATIVE: CASE EVENT DATE: 20141031
